FAERS Safety Report 5066780-X (Version None)
Quarter: 2006Q3

REPORT INFORMATION
  Report Type: 
  Country: None (occurrence: None)
  Receive Date: 20060801
  Receipt Date: 20060727
  Transmission Date: 20061208
  Serious: Yes (Death, Hospitalization)
  Sender: FDA-Public Use
  Company Number: US-JNJFOC-20060307315

PATIENT
  Sex: Female

DRUGS (8)
  1. EXTRA STRENGTH TYLENOL [Suspect]
  2. EXTRA STRENGTH TYLENOL [Suspect]
     Indication: VIRAL INFECTION
  3. PREDNISONE [Concomitant]
     Indication: POLYMYALGIA RHEUMATICA
  4. LIPITOR [Concomitant]
     Indication: BLOOD CHOLESTEROL INCREASED
  5. POTASSIUM [Concomitant]
  6. THYROID TAB [Concomitant]
     Indication: THYROID DISORDER
  7. BLOOD PRESSURE MEDICATION [Concomitant]
     Indication: HYPERTENSION
  8. IBUPROFEN [Concomitant]
     Indication: MYALGIA

REACTIONS (2)
  - MYOCARDIAL INFARCTION [None]
  - PALPITATIONS [None]
